FAERS Safety Report 6834426-3 (Version None)
Quarter: 2010Q3

REPORT INFORMATION
  Report Type: 
  Country: None (occurrence: None)
  Receive Date: 20100712
  Receipt Date: 20070420
  Transmission Date: 20110219
  Serious: No
  Sender: FDA-Public Use
  Company Number: US-PFIZER INC-2007033671

PATIENT
  Sex: Female
  Weight: 72.57 kg

DRUGS (6)
  1. CHANTIX [Suspect]
     Indication: SMOKING CESSATION THERAPY
     Dates: start: 20070301, end: 20070301
  2. ZYRTEC [Concomitant]
  3. MONTELUKAST SODIUM [Concomitant]
  4. NASONEX [Concomitant]
  5. ZYBAN [Concomitant]
     Indication: SMOKING CESSATION THERAPY
  6. ALL OTHER THERAPEUTIC PRODUCTS [Concomitant]
     Indication: SMOKING CESSATION THERAPY

REACTIONS (1)
  - BACK PAIN [None]
